FAERS Safety Report 4499703-2 (Version None)
Quarter: 2004Q4

REPORT INFORMATION
  Report Type: 
  Country: None (occurrence: None)
  Receive Date: 20041108
  Receipt Date: 20041027
  Transmission Date: 20050328
  Serious: Yes (Other)
  Sender: FDA-Public Use
  Company Number: GBR-2004-0001339

PATIENT
  Age: 49 Year
  Sex: Male

DRUGS (8)
  1. MORPHINE SULFATE [Suspect]
     Indication: PAIN
     Dosage: 200-360MG, BID
  2. NUBAIN [Suspect]
     Indication: PAIN
     Dosage: 10 MG, DAILY, INTRAMUSCULAR
     Route: 030
     Dates: start: 20040105, end: 20040105
  3. DIAMORPHINE (DIAMORPHINE) [Suspect]
     Indication: PAIN
     Dosage: 10 MG, DAILY, INTRAMUSCULAR
     Route: 030
  4. IBUPROFEN [Concomitant]
  5. CYCLIZINE (CYCLIZINE) [Concomitant]
  6. ACETYLSALICYLIC ACID [Concomitant]
  7. DIETHYLSTILBESTROL [Concomitant]
  8. CO-DANTHRAMER SUSPENSION (POLOXAMER, DANTRON, POLOXAMER, DANTRON) SUSP [Concomitant]

REACTIONS (11)
  - ANAPHYLACTIC REACTION [None]
  - DISEASE PROGRESSION [None]
  - DRUG INTERACTION [None]
  - FEELING HOT [None]
  - FLUSHING [None]
  - HYPERHIDROSIS [None]
  - NAUSEA [None]
  - PALPITATIONS [None]
  - RASH [None]
  - TREMOR [None]
  - UNEVALUABLE EVENT [None]
